FAERS Safety Report 12682569 (Version 1)
Quarter: 2016Q3

REPORT INFORMATION
  Report Type: Spontaneous
  Country: NO (occurrence: NO)
  Receive Date: 20160825
  Receipt Date: 20160825
  Transmission Date: 20161109
  Serious: Yes (Disabling, Other)
  Sender: FDA-Public Use
  Company Number: NO-009507513-1608NOR009791

PATIENT
  Age: 23 Year
  Sex: Male
  Weight: 73 kg

DRUGS (2)
  1. PROSCAR [Suspect]
     Active Substance: FINASTERIDE
     Indication: ALOPECIA
     Dosage: 1 MG, QD
     Route: 048
     Dates: start: 201009, end: 201103
  2. CIALIS [Concomitant]
     Active Substance: TADALAFIL
     Indication: PROSTATITIS
     Dates: start: 20160420

REACTIONS (28)
  - Pallor [Unknown]
  - Confusional state [Unknown]
  - Discomfort [Recovered/Resolved]
  - Loss of libido [Unknown]
  - Penis disorder [Not Recovered/Not Resolved]
  - Suicidal ideation [Unknown]
  - Fatigue [Not Recovered/Not Resolved]
  - Fatigue [Not Recovered/Not Resolved]
  - Depression [Not Recovered/Not Resolved]
  - Erectile dysfunction [Not Recovered/Not Resolved]
  - Abdominal discomfort [Unknown]
  - Pallor [Recovered/Resolved]
  - Feeling abnormal [Recovered/Resolved]
  - Dyspnoea [Recovered/Resolved]
  - Asthenia [Unknown]
  - Dysuria [Unknown]
  - Bowel movement irregularity [Unknown]
  - Loss of libido [Unknown]
  - Penis disorder [Unknown]
  - Depression [Unknown]
  - Loss of libido [Recovered/Resolved]
  - Anxiety [Not Recovered/Not Resolved]
  - Prostatitis [Not Recovered/Not Resolved]
  - Abdominal discomfort [Recovered/Resolved]
  - Libido decreased [Not Recovered/Not Resolved]
  - Suicidal ideation [Not Recovered/Not Resolved]
  - Feeling abnormal [Unknown]
  - Erectile dysfunction [Unknown]

NARRATIVE: CASE EVENT DATE: 20110320
